FAERS Safety Report 9423687 (Version 3)
Quarter: 2013Q3

REPORT INFORMATION
  Report Type: Report from Study
  Country: CA (occurrence: CA)
  Receive Date: 20130727
  Receipt Date: 20130917
  Transmission Date: 20140515
  Serious: Yes (Hospitalization, Other)
  Sender: FDA-Public Use
  Company Number: CA-ROCHE-1253832

PATIENT
  Age: 74 Year
  Sex: Female

DRUGS (7)
  1. RITUXAN [Suspect]
     Indication: LYMPHOMA
     Route: 042
     Dates: start: 201210, end: 201302
  2. RITUXAN [Suspect]
     Indication: RHEUMATOID ARTHRITIS
     Route: 042
     Dates: start: 20130909
  3. SOLU-MEDROL [Suspect]
     Indication: PREMEDICATION
     Dosage: ONCE
     Route: 042
     Dates: start: 20130909
  4. CELEBREX [Concomitant]
     Route: 065
  5. VITAMIN B12 [Concomitant]
  6. DIPHENHYDRAMINE HCL [Concomitant]
     Indication: PREMEDICATION
     Route: 048
     Dates: start: 20130909
  7. ACETAMINOPHEN [Concomitant]
     Indication: PREMEDICATION
     Route: 048
     Dates: start: 20130909

REACTIONS (3)
  - Colon cancer [Unknown]
  - Arrhythmia [Unknown]
  - Feeling jittery [Unknown]
